FAERS Safety Report 19624209 (Version 3)
Quarter: 2021Q3

REPORT INFORMATION
  Report Type: Spontaneous
  Country: CA (occurrence: CA)
  Receive Date: 20210729
  Receipt Date: 20210909
  Transmission Date: 20211014
  Serious: Yes (Other)
  Sender: FDA-Public Use
  Company Number: CA-CELLTRION INC.-2021CA010143

PATIENT

DRUGS (8)
  1. METHOTREXATE. [Concomitant]
     Active Substance: METHOTREXATE
     Dosage: 1 DF, WEEKLY
     Route: 065
     Dates: start: 202009
  2. INFLECTRA [Suspect]
     Active Substance: INFLIXIMAB-DYYB
     Indication: CROHN^S DISEASE
     Dosage: 318 MG INDUCTION AT 0, 2, 6, THEN EVERY 8 WEEK MAINTENANCE
     Route: 042
     Dates: start: 20210511
  3. HYDROCORTISONE. [Concomitant]
     Active Substance: HYDROCORTISONE
     Indication: PREMEDICATION
     Dosage: 100 MG
     Route: 042
     Dates: start: 20210511, end: 20210511
  4. INFLECTRA [Suspect]
     Active Substance: INFLIXIMAB-DYYB
     Dosage: 318 MG INDUCTION AT 0, 2, 6, THEN EVERY 8 WEEK MAINTENANCE
     Route: 042
     Dates: start: 20210628
  5. INFLECTRA [Suspect]
     Active Substance: INFLIXIMAB-DYYB
     Dosage: 318 MG INDUCTION AT 0, 2, 6, THEN EVERY 8 WEEK MAINTENANCE
     Route: 042
     Dates: start: 20210818
  6. INFLECTRA [Suspect]
     Active Substance: INFLIXIMAB-DYYB
     Dosage: 318 MG INDUCTION AT 0, 2, 6, THEN EVERY 8 WEEK MAINTENANCE
     Route: 042
     Dates: start: 20210526
  7. FOLIC ACID. [Concomitant]
     Active Substance: FOLIC ACID
     Dosage: 5 MG
  8. HYDROCORTISONE. [Concomitant]
     Active Substance: HYDROCORTISONE
     Dosage: 100 MG
     Route: 042
     Dates: start: 20210628, end: 20210628

REACTIONS (6)
  - Arthralgia [Not Recovered/Not Resolved]
  - Heart rate decreased [Unknown]
  - Uveitis [Unknown]
  - Vision blurred [Unknown]
  - Condition aggravated [Recovering/Resolving]
  - Ocular discomfort [Unknown]

NARRATIVE: CASE EVENT DATE: 20210628
